FAERS Safety Report 8945634 (Version 2)
Quarter: 2013Q1

REPORT INFORMATION
  Report Type: Spontaneous
  Country: US (occurrence: US)
  Receive Date: 20121204
  Receipt Date: 20130102
  Transmission Date: 20140127
  Serious: Yes (Other)
  Sender: FDA-Public Use
  Company Number: US-AMGEN-USASP2012075596

PATIENT
  Sex: Female

DRUGS (4)
  1. ENBREL [Suspect]
     Indication: PRODUCT USED FOR UNKNOWN INDICATION
     Dosage: UNK
  2. REMICADE [Suspect]
     Dosage: UNK
  3. ACTEMRA [Suspect]
     Dosage: UNK
  4. CIMZIA [Concomitant]
     Dosage: UNK

REACTIONS (4)
  - Multiple sclerosis [Unknown]
  - Nasal discomfort [Unknown]
  - Muscle twitching [Unknown]
  - Drug effect decreased [Unknown]
